FAERS Safety Report 23483585 (Version 2)
Quarter: 2024Q1

REPORT INFORMATION
  Report Type: Spontaneous
  Country: US (occurrence: US)
  Receive Date: 20240205
  Receipt Date: 20240207
  Transmission Date: 20240409
  Serious: No
  Sender: FDA-Public Use
  Company Number: US-PFIZER INC-202400031214

PATIENT
  Sex: Female

DRUGS (1)
  1. SOLU-MEDROL [Suspect]
     Active Substance: METHYLPREDNISOLONE SODIUM SUCCINATE
     Indication: Urinary tract infection
     Dosage: UNK UNK, SINGLE

REACTIONS (9)
  - Drug ineffective for unapproved indication [Unknown]
  - Off label use [Unknown]
  - Muscular weakness [Unknown]
  - Osteoporosis [Unknown]
  - Contusion [Unknown]
  - Muscle atrophy [Unknown]
  - Insomnia [Unknown]
  - Weight fluctuation [Unknown]
  - Alopecia [Unknown]
